FAERS Safety Report 8156121-3 (Version None)
Quarter: 2012Q1

REPORT INFORMATION
  Report Type: 
  Country: None (occurrence: None)
  Receive Date: 20120222
  Receipt Date: 20120208
  Transmission Date: 20120608
  Serious: Yes (Other)
  Sender: FDA-Public Use
  Company Number: DE-MYLANLABS-2012S1002750

PATIENT
  Age: 0 Year
  Sex: Female
  Weight: 3.82 kg

DRUGS (4)
  1. PROTAPHANE [Concomitant]
     Route: 064
  2. SERTRALINE HYDROCHLORIDE [Suspect]
     Dosage: 150 [MG/D ]
     Route: 064
  3. RISPERDAL [Suspect]
     Dosage: 1 [MG/D ]
     Route: 064
     Dates: start: 20101207, end: 20110901
  4. ACTRAPID [Concomitant]
     Route: 064

REACTIONS (7)
  - BLOOD GLUCOSE DECREASED [None]
  - MATERNAL EXPOSURE DURING PREGNANCY [None]
  - NEONATAL RESPIRATORY DISTRESS SYNDROME [None]
  - FOETAL MACROSOMIA [None]
  - HYPERTONIA NEONATAL [None]
  - BLOOD PH DECREASED [None]
  - CEREBRAL CALCIFICATION [None]
